FAERS Safety Report 6769372-7 (Version None)
Quarter: 2010Q2

REPORT INFORMATION
  Report Type: 
  Country: None (occurrence: None)
  Receive Date: 20100615
  Receipt Date: 20100611
  Transmission Date: 20101027
  Serious: Yes (Life-Threatening)
  Sender: FDA-Public Use
  Company Number: US-ASTRAZENECA-2007UW16099

PATIENT
  Age: 56 Year
  Sex: Female
  Weight: 90.7 kg

DRUGS (5)
  1. SEROQUEL [Suspect]
     Indication: SCHIZOAFFECTIVE DISORDER
     Route: 048
     Dates: start: 20070501
  2. SEROQUEL [Suspect]
     Route: 048
     Dates: start: 20070707, end: 20070707
  3. SEROQUEL [Suspect]
     Route: 048
     Dates: start: 20070708
  4. SEROQUEL [Suspect]
     Route: 048
  5. DEPAKOTE [Concomitant]
     Indication: SCHIZOAFFECTIVE DISORDER
     Route: 048

REACTIONS (3)
  - HYPOTENSION [None]
  - SYNCOPE [None]
  - UNRESPONSIVE TO STIMULI [None]
